FAERS Safety Report 9882722 (Version 2)
Quarter: 2014Q1

REPORT INFORMATION
  Report Type: Spontaneous
  Country: CN (occurrence: CN)
  Receive Date: 20140207
  Receipt Date: 20140207
  Transmission Date: 20141002
  Serious: Yes (Other)
  Sender: FDA-Public Use
  Company Number: CN-PFIZER INC-2014030210

PATIENT
  Age: 38 Year
  Sex: Male

DRUGS (6)
  1. DEXAMETHASONE SODIUM PHOSPHATE [Suspect]
     Dosage: 10 MG, UNK
  2. IMIPENEM [Concomitant]
     Indication: RETINOIC ACID SYNDROME
     Dosage: 1 G, 3X/DAY
  3. ATRA [Concomitant]
     Indication: LEUKAEMIA
     Dosage: 20 MG, 2X/DAY
     Route: 048
  4. ATRA [Concomitant]
     Dosage: TAPERED TO 30 MG
  5. ATRA [Concomitant]
     Dosage: 20 MG, 2X/DAY
  6. DEXAMETHASONE SODIUM PHOSPHATE [Suspect]
     Indication: RETINOIC ACID SYNDROME
     Dosage: 5 MG, 1X/DAY

REACTIONS (2)
  - Immune system disorder [Unknown]
  - Fungal infection [Unknown]
